FAERS Safety Report 25787719 (Version 1)
Quarter: 2025Q3

REPORT INFORMATION
  Report Type: Spontaneous
  Country: US (occurrence: US)
  Receive Date: 20250910
  Receipt Date: 20250910
  Transmission Date: 20251021
  Serious: No
  Sender: FOUNDATION CONSUMER HEALTHCARE, LLC
  Company Number: US-FOUNDATIONCONSUMERHC-2025-US-032800

PATIENT
  Age: 37 Year
  Sex: Female
  Weight: 93.89 kg

DRUGS (2)
  1. PLAN B ONE-STEP [Suspect]
     Active Substance: LEVONORGESTREL
     Indication: Contraception
     Route: 048
  2. MAGNESIUM [Concomitant]
     Active Substance: MAGNESIUM

REACTIONS (13)
  - Paraesthesia [Not Recovered/Not Resolved]
  - Restlessness [Not Recovered/Not Resolved]
  - Fatigue [Not Recovered/Not Resolved]
  - Schizophrenia [Unknown]
  - Intentional product misuse [Unknown]
  - Product use in unapproved indication [Unknown]
  - Headache [Not Recovered/Not Resolved]
  - Hallucination [Unknown]
  - Vomiting [Unknown]
  - Abnormal behaviour [Unknown]
  - Emotional disorder [Unknown]
  - Delusion [Unknown]
  - Disorientation [Unknown]

NARRATIVE: CASE EVENT DATE: 20230101
